FAERS Safety Report 7338856-5 (Version None)
Quarter: 2011Q1

REPORT INFORMATION
  Report Type: 
  Country: None (occurrence: None)
  Receive Date: 20110303
  Receipt Date: 20110303
  Transmission Date: 20110831
  Serious: Yes (Other)
  Sender: FDA-Public Use
  Company Number: None

PATIENT
  Sex: Female
  Weight: 65.7716 kg

DRUGS (1)
  1. GELNIQUE [Suspect]
     Indication: HYPERTONIC BLADDER
     Dosage: ONE PACKET GEL DAILY TOPICAL ADM. PER DIRECTION (LAST WEEK JAN - FEB 11, 2011)
     Route: 061

REACTIONS (3)
  - PRURITUS GENERALISED [None]
  - LARYNGITIS [None]
  - RASH GENERALISED [None]
